FAERS Safety Report 10710129 (Version 6)
Quarter: 2015Q2

REPORT INFORMATION
  Report Type: Spontaneous
  Country: US (occurrence: US)
  Receive Date: 20150114
  Receipt Date: 20150430
  Transmission Date: 20150821
  Serious: Yes (Hospitalization, Congenital Anomaly, Other)
  Sender: FDA-Public Use
  Company Number: US-APOTEX-2015AP005189

PATIENT
  Age: 15 Year
  Sex: Male

DRUGS (2)
  1. PAXIL [Suspect]
     Active Substance: PAROXETINE HYDROCHLORIDE
     Dosage: 20 MG, BID
     Route: 064
     Dates: end: 1994
  2. PAXIL [Suspect]
     Active Substance: PAROXETINE HYDROCHLORIDE
     Indication: POSTPARTUM DEPRESSION
     Dosage: 20 MG, QD
     Route: 064
     Dates: end: 1994

REACTIONS (32)
  - Brain injury [Unknown]
  - Heart disease congenital [Unknown]
  - Congenital hemiparesis [Unknown]
  - Cerebral atrophy congenital [Unknown]
  - Osteoporosis [Unknown]
  - Foetal exposure during pregnancy [Unknown]
  - Pulmonary artery stenosis [Recovering/Resolving]
  - Multiple cardiac defects [Unknown]
  - Speech disorder [Unknown]
  - Atrial fibrillation [Unknown]
  - Attention deficit/hyperactivity disorder [Unknown]
  - Haematochezia [Unknown]
  - Seizure [Unknown]
  - Cerebral palsy [Unknown]
  - Encephalopathy neonatal [Unknown]
  - Arrhythmia [Unknown]
  - Lung disorder [Unknown]
  - Mental retardation [Unknown]
  - Cardiac murmur [Unknown]
  - Petit mal epilepsy [Unknown]
  - Ventricular septal defect [Unknown]
  - Asthma [Unknown]
  - Impulse-control disorder [Unknown]
  - Aortic valve stenosis [Recovering/Resolving]
  - Transposition of the great vessels [Unknown]
  - Fallot^s tetralogy [Unknown]
  - Haemorrhage intracranial [Unknown]
  - Pulmonary valve stenosis [Unknown]
  - Autism [Unknown]
  - Microencephaly [Unknown]
  - Language disorder [Unknown]
  - Developmental delay [Unknown]

NARRATIVE: CASE EVENT DATE: 1994
